FAERS Safety Report 13637541 (Version 1)
Quarter: 2017Q2

REPORT INFORMATION
  Report Type: Spontaneous
  Country: US (occurrence: US)
  Receive Date: 20170609
  Receipt Date: 20170609
  Transmission Date: 20170830
  Serious: Yes (Hospitalization, Other)
  Sender: FDA-Public Use
  Company Number: US-TEVA-776108USA

PATIENT
  Age: 67 Year
  Sex: Female
  Weight: 97.98 kg

DRUGS (2)
  1. GABAPENTIN. [Suspect]
     Active Substance: GABAPENTIN
     Indication: DIABETIC NEUROPATHY
     Dosage: ONE CAP BREAKFAST, TWO CAP LUNCH, 2 CAP SUPPER
     Route: 048
  2. LYRICA [Suspect]
     Active Substance: PREGABALIN
     Route: 048
     Dates: start: 20170307, end: 201703

REACTIONS (6)
  - Adverse event [Unknown]
  - Knee arthroplasty [Recovering/Resolving]
  - Nerve compression [Not Recovered/Not Resolved]
  - Chest discomfort [Recovered/Resolved]
  - Drug ineffective [Unknown]
  - Feeling abnormal [Not Recovered/Not Resolved]

NARRATIVE: CASE EVENT DATE: 201702
